FAERS Safety Report 25015167 (Version 7)
Quarter: 2025Q4

REPORT INFORMATION
  Report Type: Report from Study
  Country: US (occurrence: US)
  Receive Date: 20250226
  Receipt Date: 20251021
  Transmission Date: 20260119
  Serious: Yes (Hospitalization)
  Sender: ABBVIE
  Company Number: US-ABBVIE-6145016

PATIENT
  Age: 59 Year
  Sex: Female

DRUGS (3)
  1. SKYRIZI [Suspect]
     Active Substance: RISANKIZUMAB-RZAA
     Indication: Psoriasis
     Route: 058
     Dates: start: 20220830, end: 202505
  2. SKYRIZI [Suspect]
     Active Substance: RISANKIZUMAB-RZAA
     Dosage: LAST ADMIN DATE AS 08/2022.
     Route: 058
     Dates: start: 20220801
  3. SKYRIZI [Suspect]
     Active Substance: RISANKIZUMAB-RZAA
     Dosage: 150 MILLIGRAM/MILLILITERS
     Route: 030
     Dates: start: 2019

REACTIONS (19)
  - Cerebrovascular accident [Not Recovered/Not Resolved]
  - Influenza [Unknown]
  - Fibromyalgia [Not Recovered/Not Resolved]
  - Migraine [Recovering/Resolving]
  - Measles [Unknown]
  - Back disorder [Not Recovered/Not Resolved]
  - Overweight [Not Recovered/Not Resolved]
  - Skin exfoliation [Recovering/Resolving]
  - Psoriasis [Not Recovered/Not Resolved]
  - Pain [Not Recovered/Not Resolved]
  - Pain in extremity [Not Recovered/Not Resolved]
  - Gait disturbance [Not Recovered/Not Resolved]
  - Feeling abnormal [Not Recovered/Not Resolved]
  - Sluggishness [Not Recovered/Not Resolved]
  - Fatigue [Unknown]
  - Malaise [Unknown]
  - Acne [Unknown]
  - Blister rupture [Unknown]
  - Respiratory disorder [Unknown]

NARRATIVE: CASE EVENT DATE: 20220830
